FAERS Safety Report 5718769-2 (Version None)
Quarter: 2008Q2

REPORT INFORMATION
  Report Type: 
  Country: None (occurrence: None)
  Receive Date: 20080425
  Receipt Date: 20080418
  Transmission Date: 20081010
  Serious: Yes (Other)
  Sender: FDA-Public Use
  Company Number: PHHY2008JP06166

PATIENT
  Sex: Male

DRUGS (10)
  1. ZADITEN [Suspect]
     Route: 048
  2. BISOPOLLON [Concomitant]
  3. ALDACTONE [Concomitant]
  4. ADALAT [Concomitant]
  5. MAGNESIUM OXIDE [Concomitant]
  6. BLOPRESS [Concomitant]
  7. FORSENID [Concomitant]
  8. BACTRIM [Concomitant]
  9. TULOBUTEROL [Concomitant]
  10. THEO-DUR [Concomitant]

REACTIONS (3)
  - BLOOD CREATINE PHOSPHOKINASE INCREASED [None]
  - NEUROLEPTIC MALIGNANT SYNDROME [None]
  - PYREXIA [None]
